FAERS Safety Report 20327959 (Version 1)
Quarter: 2022Q1

REPORT INFORMATION
  Report Type: Spontaneous
  Country: FR (occurrence: FR)
  Receive Date: 20220112
  Receipt Date: 20220112
  Transmission Date: 20220424
  Serious: Yes (Other)
  Sender: FDA-Public Use
  Company Number: None

PATIENT
  Age: 35 Year
  Sex: Male

DRUGS (2)
  1. CYAMEMAZINE [Interacting]
     Active Substance: CYAMEMAZINE
     Indication: Product used for unknown indication
     Dosage: 400 GTT DROPS
     Route: 048
     Dates: start: 20211111
  2. RISPERIDONE [Interacting]
     Active Substance: RISPERIDONE
     Indication: Product used for unknown indication
     Dosage: 8 MILLILITER, QD
     Route: 048
     Dates: start: 20211111

REACTIONS (3)
  - Constipation [Recovered/Resolved]
  - Enuresis [Recovered/Resolved with Sequelae]
  - Drug interaction [Unknown]

NARRATIVE: CASE EVENT DATE: 20211101
